FAERS Safety Report 7714641-7 (Version None)
Quarter: 2011Q3

REPORT INFORMATION
  Report Type: 
  Country: None (occurrence: None)
  Receive Date: 20110829
  Receipt Date: 20110817
  Transmission Date: 20111222
  Serious: Yes (Other)
  Sender: FDA-Public Use
  Company Number: GB-JNJFOC-20110700413

PATIENT
  Sex: Female

DRUGS (9)
  1. GLIPIZIDE [Concomitant]
     Route: 048
  2. FOLIC ACID [Concomitant]
     Route: 048
  3. STELARA [Suspect]
     Indication: PSORIASIS
     Route: 058
     Dates: start: 20101209
  4. ASPIRIN [Concomitant]
     Route: 048
  5. PIOGLITAZONE [Concomitant]
     Route: 048
  6. ISOSORBIDE MONONITRATE [Concomitant]
     Route: 048
  7. FUROSEMIDE [Concomitant]
     Route: 048
  8. METFORMIN HCL [Concomitant]
     Route: 048
  9. SIMAVASTATIN [Concomitant]
     Route: 048

REACTIONS (8)
  - BRONCHOSPASM [None]
  - HYPERSENSITIVITY [None]
  - FATIGUE [None]
  - TREMOR [None]
  - DYSPNOEA [None]
  - RASH MACULAR [None]
  - PRURITUS [None]
  - CHILLS [None]
